FAERS Safety Report 11885319 (Version 1)
Quarter: 2015Q4

REPORT INFORMATION
  Report Type: Spontaneous
  Country: US (occurrence: None)
  Receive Date: 20151231
  Receipt Date: 20151231
  Transmission Date: 20160305
  Serious: Yes (Life-Threatening, Hospitalization, Other)
  Sender: FDA-Public Use
  Company Number: None

PATIENT
  Age: 8 Year
  Sex: Male
  Weight: 24.95 kg

DRUGS (8)
  1. VITAMIN C [Concomitant]
     Active Substance: ASCORBIC ACID
  2. OMEPRAZOLE 20 MG KROGER [Suspect]
     Active Substance: OMEPRAZOLE
     Indication: GASTROOESOPHAGEAL REFLUX DISEASE
     Dosage: 1 PILL
     Route: 048
     Dates: start: 20151214, end: 20151228
  3. VITAMIN D [Concomitant]
     Active Substance: CHOLECALCIFEROL
  4. ATARAX [Concomitant]
     Active Substance: HYDROXYZINE\HYDROXYZINE HYDROCHLORIDE
  5. MULTIVITAMIN [Concomitant]
     Active Substance: VITAMINS
  6. PROBIOTIC [Concomitant]
     Active Substance: PROBIOTICS NOS
  7. VYVANSE [Concomitant]
     Active Substance: LISDEXAMFETAMINE DIMESYLATE
  8. PRILOSEC [Concomitant]
     Active Substance: OMEPRAZOLE MAGNESIUM

REACTIONS (4)
  - Vomiting [None]
  - Appendicitis [None]
  - Abdominal pain lower [None]
  - Pyrexia [None]

NARRATIVE: CASE EVENT DATE: 20151228
